FAERS Safety Report 5726968-9 (Version None)
Quarter: 2008Q2

REPORT INFORMATION
  Report Type: 
  Country: None (occurrence: None)
  Receive Date: 20080502
  Receipt Date: 20080423
  Transmission Date: 20081010
  Serious: Yes (Hospitalization)
  Sender: FDA-Public Use
  Company Number: FR-ABBOTT-08P-056-0448610-00

PATIENT
  Sex: Male

DRUGS (6)
  1. DEPAKOTE [Suspect]
     Indication: BIPOLAR I DISORDER
     Route: 048
     Dates: start: 20060401, end: 20071231
  2. OMEPRAZOLE [Suspect]
     Indication: ABDOMINAL PAIN UPPER
     Route: 048
     Dates: start: 20060401, end: 20071226
  3. ACEBUTOLOL HYDROCHLORIDE [Concomitant]
     Indication: ISCHAEMIC CARDIOMYOPATHY
     Route: 048
  4. NICARDIPINE HYDROCHLORIDE [Concomitant]
     Indication: ISCHAEMIC CARDIOMYOPATHY
     Route: 048
  5. FLUOXETINE HYDROCHLORIDE [Concomitant]
     Indication: PSYCHOTIC DISORDER
     Route: 048
  6. MOLSIDOMINE [Concomitant]
     Indication: DRUG USE FOR UNKNOWN INDICATION

REACTIONS (4)
  - CONVULSION [None]
  - FALL [None]
  - LEUKOPENIA [None]
  - NEUTROPENIA [None]
